FAERS Safety Report 24414851 (Version 1)
Quarter: 2024Q4

REPORT INFORMATION
  Report Type: Spontaneous
  Country: PT (occurrence: PT)
  Receive Date: 20241009
  Receipt Date: 20241009
  Transmission Date: 20250114
  Serious: Yes (Hospitalization, Other)
  Sender: MERCK
  Company Number: None

PATIENT
  Age: 80 Year
  Sex: Male
  Weight: 83 kg

DRUGS (12)
  1. KEYTRUDA [Suspect]
     Active Substance: PEMBROLIZUMAB
     Indication: Non-small cell lung cancer
     Dosage: 200 MG IV 21/21 DAYS
     Route: 042
     Dates: start: 20231110
  2. KEYTRUDA [Suspect]
     Active Substance: PEMBROLIZUMAB
     Dosage: 200 MG IV 21/21 DAYS
     Route: 042
  3. KEYTRUDA [Suspect]
     Active Substance: PEMBROLIZUMAB
     Dosage: 200 MG IV 21/21 DAYS
     Route: 042
  4. KEYTRUDA [Suspect]
     Active Substance: PEMBROLIZUMAB
     Dosage: 200 MG IV 21/21 DAYS
     Route: 042
  5. KEYTRUDA [Suspect]
     Active Substance: PEMBROLIZUMAB
     Dosage: 200 MG IV 21/21 DAYS
     Route: 042
  6. KEYTRUDA [Suspect]
     Active Substance: PEMBROLIZUMAB
     Dosage: 200 MG IV 21/21 DAYS
     Route: 042
  7. ALLOPURINOL [Concomitant]
     Active Substance: ALLOPURINOL
     Indication: Product used for unknown indication
     Dosage: 150 MILLIGRAM, QD (300MG 1/2 TABLET AT LUNCH)
     Route: 048
  8. BETAHISTINE [Concomitant]
     Active Substance: BETAHISTINE
     Indication: Product used for unknown indication
     Dosage: 48 MILLIGRAM, QD, 1 CP AT PA AND 1 CP AT DINNER (1 TABLET AT BEDTIME)
     Route: 048
  9. OMEPRAZOLE [Concomitant]
     Active Substance: OMEPRAZOLE
     Indication: Product used for unknown indication
     Dosage: 20 MILLIGRAM, QD, FASTING (ON AN EMPTY STOMACH)
     Route: 048
  10. DUTASTERIDA/TAMSULOSINA [Concomitant]
     Indication: Product used for unknown indication
     Dosage: 1 DOSAGE FORM, QD,0.5 + 0.4 MG 1 TABLET AT DINNER
     Route: 048
  11. BUDESONIDE\FORMOTEROL\GLYCOPYRROLATE [Concomitant]
     Active Substance: BUDESONIDE\FORMOTEROL\GLYCOPYRROLATE
     Indication: Product used for unknown indication
     Dosage: 2 DOSAGE FORM, Q12H, STRENGTH: 160 MICROG + 5 MICROG + 7.2 MICROG
  12. EBASTINE [Concomitant]
     Active Substance: EBASTINE
     Indication: Product used for unknown indication
     Dosage: 10 MILLIGRAM, SOS
     Route: 048

REACTIONS (4)
  - Colitis [Recovering/Resolving]
  - Diarrhoea [Recovering/Resolving]
  - Abdominal pain [Recovering/Resolving]
  - Haematochezia [Recovering/Resolving]

NARRATIVE: CASE EVENT DATE: 20240506
